FAERS Safety Report 13249922 (Version 1)
Quarter: 2017Q1

REPORT INFORMATION
  Report Type: Spontaneous
  Country: US (occurrence: US)
  Receive Date: 20170218
  Receipt Date: 20170218
  Transmission Date: 20170428
  Serious: No
  Sender: FDA-Public Use
  Company Number: US-ALLERGAN-1663949US

PATIENT
  Age: 81 Year
  Sex: Female

DRUGS (3)
  1. RESTASIS [Suspect]
     Active Substance: CYCLOSPORINE
     Indication: DRY EYE
     Dosage: UNK UNK, BID
     Route: 047
     Dates: start: 201606
  2. ALREX [Concomitant]
     Active Substance: LOTEPREDNOL ETABONATE
     Indication: BLEPHARITIS
     Route: 047
  3. OCUSOFT V.M.S. [Concomitant]
     Indication: BLEPHARITIS
     Route: 047

REACTIONS (5)
  - Wrong technique in product usage process [Unknown]
  - Incorrect product storage [Unknown]
  - Blepharitis [Not Recovered/Not Resolved]
  - Eye pain [Not Recovered/Not Resolved]
  - Product container issue [Unknown]

NARRATIVE: CASE EVENT DATE: 201606
